FAERS Safety Report 24685599 (Version 1)
Quarter: 2024Q4

REPORT INFORMATION
  Report Type: Spontaneous
  Country: US (occurrence: None)
  Receive Date: 20241127
  Receipt Date: 20241127
  Transmission Date: 20250114
  Serious: No
  Sender: Public
  Company Number: None

PATIENT
  Sex: Female

DRUGS (5)
  1. DEVICE [Suspect]
     Active Substance: DEVICE
     Indication: Pulmonary arterial hypertension
     Dosage: OTHER FREQUENCY : CONTINOUS;?
     Route: 042
     Dates: start: 202402
  2. VELETRI [Suspect]
     Active Substance: EPOPROSTENOL
     Indication: Pulmonary arterial hypertension
     Route: 042
     Dates: start: 202402
  3. SODIUM CHLOR INJ (1000ML/BAG [Concomitant]
  4. OPSUMIT [Concomitant]
  5. VELETRI SDV [Concomitant]

REACTIONS (4)
  - Device delivery system issue [None]
  - Device alarm issue [None]
  - Nausea [None]
  - Dizziness [None]
